FAERS Safety Report 20232514 (Version 2)
Quarter: 2022Q1

REPORT INFORMATION
  Report Type: Report from Study
  Country: FR (occurrence: None)
  Receive Date: 20211227
  Receipt Date: 20220210
  Transmission Date: 20220423
  Serious: Yes (Other)
  Sender: FDA-Public Use
  Company Number: FR-ROCHE-2984546

PATIENT
  Age: 58 Year
  Sex: Male
  Weight: 104 kg

DRUGS (40)
  1. COBIMETINIB [Suspect]
     Active Substance: COBIMETINIB
     Indication: Metastatic malignant melanoma
     Dosage: DATE OF LAST DOSE OF COBIMETINIB PRIOR TO AE ONSET 22 JUL 2021
     Route: 048
     Dates: start: 20191130
  2. ATEZOLIZUMAB [Suspect]
     Active Substance: ATEZOLIZUMAB
     Indication: Metastatic malignant melanoma
     Dosage: DATE OF LAST DOSE OF ATEZOLIZUMAB PRIOR TO AE ONSET 23 JUL 2021
     Route: 041
     Dates: start: 20191226
  3. VEMURAFENIB [Suspect]
     Active Substance: VEMURAFENIB
     Indication: Metastatic malignant melanoma
     Dosage: DATE OF LAST DOSE OF VEMURAFENIB PRIOR TO AE ONSET 22/JUL/2021
     Route: 048
     Dates: start: 20191130
  4. SKENAN [Concomitant]
     Active Substance: MORPHINE SULFATE
     Dates: start: 20191204, end: 20200117
  5. SKENAN [Concomitant]
     Active Substance: MORPHINE SULFATE
     Dates: start: 2019, end: 20191203
  6. MORPHINE SULFATE [Concomitant]
     Active Substance: MORPHINE SULFATE
     Dates: start: 2019
  7. MORPHINE SULFATE [Concomitant]
     Active Substance: MORPHINE SULFATE
     Dates: start: 20200113, end: 20200114
  8. POTASSIUM CHLORIDE [Concomitant]
     Active Substance: POTASSIUM CHLORIDE
     Dates: start: 20200108, end: 20200114
  9. MOVICOL [Concomitant]
     Active Substance: POLYETHYLENE GLYCOL 3350\POTASSIUM CHLORIDE\SODIUM BICARBONATE\SODIUM CHLORIDE
     Dates: start: 20200103, end: 20200217
  10. PRIMPERAN [Concomitant]
     Active Substance: METOCLOPRAMIDE HYDROCHLORIDE
     Dates: start: 20200107, end: 20200114
  11. ACETAMINOPHEN [Concomitant]
     Active Substance: ACETAMINOPHEN
     Route: 042
     Dates: start: 20210617, end: 20210617
  12. IBUPROFEN [Concomitant]
     Active Substance: IBUPROFEN
  13. OXYCODONE HYDROCHLORIDE [Concomitant]
     Active Substance: OXYCODONE HYDROCHLORIDE
  14. NICARDIPINE HYDROCHLORIDE [Concomitant]
     Active Substance: NICARDIPINE HYDROCHLORIDE
  15. CANDESARTAN [Concomitant]
     Active Substance: CANDESARTAN
  16. POLYETHYLENE GLYCOL 4000 [Concomitant]
     Active Substance: POLYETHYLENE GLYCOL 4000
  17. PETROLATUM [Concomitant]
     Active Substance: PETROLATUM
  18. DAFALGAN [Concomitant]
     Active Substance: ACETAMINOPHEN
  19. CICALFATE [Concomitant]
  20. PHLOROGLUCINOL\1,3,5-TRIMETHOXYBENZENE [Concomitant]
     Active Substance: PHLOROGLUCINOL\1,3,5-TRIMETHOXYBENZENE
  21. MORINGA [Concomitant]
  22. DOLIPRANE [Concomitant]
     Active Substance: ACETAMINOPHEN
  23. IBUPROFEN [Concomitant]
     Active Substance: IBUPROFEN
  24. CHOLECALCIFEROL [Concomitant]
     Active Substance: CHOLECALCIFEROL
  25. CARBOMER [Concomitant]
     Active Substance: CARBOMER
  26. FENOFIBRATE [Concomitant]
     Active Substance: FENOFIBRATE
  27. URSODIOL [Concomitant]
     Active Substance: URSODIOL
  28. PROPOFOL [Concomitant]
     Active Substance: PROPOFOL
     Route: 042
     Dates: start: 20210617, end: 20210617
  29. PROPOFOL [Concomitant]
     Active Substance: PROPOFOL
     Route: 042
     Dates: start: 20210617, end: 20210617
  30. MORPHINE [Concomitant]
     Active Substance: MORPHINE
  31. KETOPROFEN [Concomitant]
     Active Substance: KETOPROFEN
  32. NEFOPAM [Concomitant]
     Active Substance: NEFOPAM
  33. KETAMINE [Concomitant]
     Active Substance: KETAMINE
     Route: 042
     Dates: start: 20210617, end: 20210617
  34. REMIFENTANIL [Concomitant]
     Active Substance: REMIFENTANIL
     Route: 042
     Dates: start: 20210617, end: 20210617
  35. LIDOCAINE [Concomitant]
     Active Substance: LIDOCAINE
     Route: 042
     Dates: start: 20210617, end: 20210617
  36. CEFAZOLIN SODIUM [Concomitant]
     Active Substance: CEFAZOLIN SODIUM
     Route: 042
     Dates: start: 20210617, end: 20210617
  37. ONDANSETRON [Concomitant]
     Active Substance: ONDANSETRON
     Route: 042
     Dates: start: 20210617, end: 20210617
  38. ATRACURIUM [Concomitant]
     Active Substance: ATRACURIUM
     Route: 042
     Dates: start: 20210617, end: 20210617
  39. NOREPINEPHRINE [Concomitant]
     Active Substance: NOREPINEPHRINE
     Route: 042
     Dates: start: 20210617, end: 20210617
  40. DEXAMETHASONE [Concomitant]
     Active Substance: DEXAMETHASONE
     Route: 042
     Dates: start: 20210617, end: 20210617

REACTIONS (1)
  - Rectal adenoma [Recovered/Resolved]

NARRATIVE: CASE EVENT DATE: 20210729
